FAERS Safety Report 6213236-4 (Version None)
Quarter: 2009Q2

REPORT INFORMATION
  Report Type: 
  Country: None (occurrence: None)
  Receive Date: 20090603
  Receipt Date: 20090528
  Transmission Date: 20091009
  Serious: Yes (Other)
  Sender: FDA-Public Use
  Company Number: PHHY2009BE20821

PATIENT
  Sex: Female

DRUGS (2)
  1. ZOLEDRONIC ACID [Suspect]
     Indication: METASTASES TO BONE
     Dosage: 4 MG, UNK
     Route: 042
     Dates: start: 20020701, end: 20080602
  2. ZOLEDRONIC ACID [Suspect]
     Indication: MULTIPLE MYELOMA

REACTIONS (3)
  - OSTEITIS [None]
  - OSTEONECROSIS [None]
  - SURGERY [None]
